FAERS Safety Report 10597990 (Version 1)
Quarter: 2014Q4

REPORT INFORMATION
  Report Type: Spontaneous
  Country: US (occurrence: None)
  Receive Date: 20141120
  Receipt Date: 20141120
  Transmission Date: 20150529
  Serious: No
  Sender: FDA-Public Use
  Company Number: None

PATIENT
  Age: 68 Year
  Sex: Female

DRUGS (1)
  1. AFINITOR [Suspect]
     Active Substance: EVEROLIMUS
     Route: 048
     Dates: start: 20141003, end: 20141113

REACTIONS (4)
  - Hepatic enzyme increased [None]
  - Abdominal pain [None]
  - Headache [None]
  - Blood glucose increased [None]

NARRATIVE: CASE EVENT DATE: 20141005
